FAERS Safety Report 24612229 (Version 1)
Quarter: 2024Q4

REPORT INFORMATION
  Report Type: Report from Study
  Country: CA (occurrence: CA)
  Receive Date: 20241113
  Receipt Date: 20241113
  Transmission Date: 20250114
  Serious: Yes (Other)
  Sender: JOHNSON AND JOHNSON
  Company Number: CA-JNJFOC-20241126346

PATIENT
  Age: 26 Year
  Sex: Male

DRUGS (1)
  1. REMICADE [Suspect]
     Active Substance: INFLIXIMAB
     Indication: Colitis ulcerative
     Route: 041
     Dates: start: 20170109

REACTIONS (2)
  - Pneumonia [Recovered/Resolved]
  - Genital herpes [Recovering/Resolving]

NARRATIVE: CASE EVENT DATE: 20241006
